FAERS Safety Report 6669168-0 (Version None)
Quarter: 2010Q2

REPORT INFORMATION
  Report Type: 
  Country: None (occurrence: None)
  Receive Date: 20100402
  Receipt Date: 20100324
  Transmission Date: 20101027
  Serious: Yes (Hospitalization)
  Sender: FDA-Public Use
  Company Number: 233026J10USA

PATIENT
  Age: 52 Year
  Sex: Male
  Weight: 126 kg

DRUGS (10)
  1. REBIF [Suspect]
     Indication: MULTIPLE SCLEROSIS
     Dosage: 44 MCG, 3 IN 1 WEEKS, SUBCUTANEOUS
     Route: 058
     Dates: start: 20070912
  2. UNSPECIFIED MEDICATION (ALL OTHER THERAPEUTIC PRODUCTS) [Concomitant]
  3. INSULIN (INSULIN) [Concomitant]
  4. LANTUS [Concomitant]
  5. NOVOLOG [Concomitant]
  6. HYDROCHLOROTHIAZIDE [Concomitant]
  7. DILTIAZEM [Concomitant]
  8. TOPROL-XL [Concomitant]
  9. ALTACE [Concomitant]
  10. ASPIRIN [Concomitant]

REACTIONS (1)
  - CORONARY ARTERY OCCLUSION [None]
